FAERS Safety Report 4616524-8 (Version None)
Quarter: 2005Q1

REPORT INFORMATION
  Report Type: 
  Country: None (occurrence: None)
  Receive Date: 20050318
  Receipt Date: 20050302
  Transmission Date: 20050727
  Serious: Yes (Death)
  Sender: FDA-Public Use
  Company Number: L04-USA-07403-58

PATIENT
  Age: 22 Year
  Sex: Male

DRUGS (7)
  1. DILTIAZEM [Suspect]
  2. LEXAPRO [Suspect]
  3. BENZODIAZEPINE [Suspect]
  4. IBUPROPHEN/PSEUDOEPHEDRINE [Suspect]
  5. CALCIUM GLUCONATE [Suspect]
  6. VITAMIN C [Suspect]
  7. VITAMIN WITH IRON [Suspect]

REACTIONS (10)
  - ATRIOVENTRICULAR BLOCK SECOND DEGREE [None]
  - BLOOD PRESSURE SYSTOLIC DECREASED [None]
  - BODY TEMPERATURE DECREASED [None]
  - CARDIO-RESPIRATORY ARREST [None]
  - COMPLETED SUICIDE [None]
  - HEART RATE INCREASED [None]
  - INTENTIONAL MISUSE [None]
  - LETHARGY [None]
  - SOMNOLENCE [None]
  - THERAPY NON-RESPONDER [None]
